FAERS Safety Report 17136658 (Version 1)
Quarter: 2019Q4

REPORT INFORMATION
  Report Type: Spontaneous
  Country: US (occurrence: US)
  Receive Date: 20191210
  Receipt Date: 20191210
  Transmission Date: 20200122
  Serious: No
  Sender: FDA-Public Use
  Company Number: US-TEVA-2019-US-1151244

PATIENT
  Sex: Male

DRUGS (1)
  1. IMATINIB MESYLATE TEVA [Suspect]
     Active Substance: IMATINIB MESYLATE
     Indication: CHRONIC MYELOID LEUKAEMIA

REACTIONS (2)
  - Product substitution issue [Unknown]
  - Dyspepsia [Unknown]
